FAERS Safety Report 5359264-2 (Version None)
Quarter: 2007Q2

REPORT INFORMATION
  Report Type: 
  Country: None (occurrence: None)
  Receive Date: 20070530
  Receipt Date: 20070315
  Transmission Date: 20071010
  Serious: No
  Sender: FDA-Public Use
  Company Number: 2007PV031810

PATIENT
  Age: 63 Year
  Sex: Male
  Weight: 197.3147 kg

DRUGS (22)
  1. BYETTA [Suspect]
     Indication: DIABETES MELLITUS NON-INSULIN-DEPENDENT
     Dosage: SEE IMAGE
     Route: 058
     Dates: start: 20061104, end: 20061203
  2. BYETTA [Suspect]
     Indication: DIABETES MELLITUS NON-INSULIN-DEPENDENT
     Dosage: SEE IMAGE
     Route: 058
     Dates: start: 20061204
  3. HUMALOG [Concomitant]
  4. LANTUS [Concomitant]
  5. PLAVIX [Concomitant]
  6. CRESTOR [Concomitant]
  7. SYNTHROID [Concomitant]
  8. METFORMIN HCL [Concomitant]
  9. POTASSIUM CHLORIDE [Concomitant]
  10. LASIX [Concomitant]
  11. TOPROL-XL [Concomitant]
  12. IMDUR [Concomitant]
  13. DIGOXIN [Concomitant]
  14. ZESTRIL [Concomitant]
  15. CENTRUM SILVER [Concomitant]
  16. ALBEE WITH C [Concomitant]
  17. THIAMINE HCL [Concomitant]
  18. CELEBREX [Concomitant]
  19. NEURONTIN [Concomitant]
  20. NITROQUICK [Concomitant]
  21. ASPIRIN [Concomitant]
  22. XANAX [Concomitant]

REACTIONS (4)
  - BLOOD GLUCOSE DECREASED [None]
  - DECREASED APPETITE [None]
  - DIARRHOEA [None]
  - WEIGHT DECREASED [None]
